FAERS Safety Report 6349028-5 (Version None)
Quarter: 2009Q3

REPORT INFORMATION
  Report Type: 
  Country: None (occurrence: None)
  Receive Date: 20090911
  Receipt Date: 20090908
  Transmission Date: 20100115
  Serious: Yes (Death, Congenital Anomaly)
  Sender: FDA-Public Use
  Company Number: US-BAYER-200932318NA

PATIENT

DRUGS (3)
  1. YAZ [Suspect]
     Indication: CONTRACEPTION
     Route: 064
  2. REBIF [Suspect]
     Indication: MULTIPLE SCLEROSIS
     Route: 064
  3. FLEXERIL [Suspect]
     Indication: MUSCLE SPASMS
     Route: 064

REACTIONS (1)
  - SPINA BIFIDA [None]
